FAERS Safety Report 7120823-8 (Version None)
Quarter: 2010Q4

REPORT INFORMATION
  Report Type: 
  Country: None (occurrence: None)
  Receive Date: 20101119
  Receipt Date: 20101119
  Transmission Date: 20110411
  Serious: Yes (Life-Threatening)
  Sender: FDA-Public Use
  Company Number: None

PATIENT
  Sex: Male
  Weight: 81.6475 kg

DRUGS (2)
  1. MORPHINE SULFATE [Suspect]
     Indication: BONE PAIN
     Dosage: 200 MG 1 EVERY 8 HRS
     Dates: start: 20080901
  2. LORTAB [Suspect]
     Indication: NEUROPATHY PERIPHERAL
     Dosage: 10/500 1 EVERY 6-8 HRS
     Dates: start: 20101113

REACTIONS (12)
  - ABDOMINAL PAIN UPPER [None]
  - BALANCE DISORDER [None]
  - BLOOD TEST [None]
  - CONDITION AGGRAVATED [None]
  - DIZZINESS [None]
  - DYSPHAGIA [None]
  - FATIGUE [None]
  - INSOMNIA [None]
  - MOOD SWINGS [None]
  - PANIC ATTACK [None]
  - PRODUCT SUBSTITUTION ISSUE [None]
  - SOMNOLENCE [None]
